FAERS Safety Report 11411288 (Version 3)
Quarter: 2015Q3

REPORT INFORMATION
  Report Type: Spontaneous
  Country: US (occurrence: US)
  Receive Date: 20150821
  Receipt Date: 20150903
  Transmission Date: 20151125
  Serious: No
  Sender: FDA-Public Use
  Company Number: US-ELI_LILLY_AND_COMPANY-US201004005884

PATIENT
  Sex: Male

DRUGS (6)
  1. HUMALOG [Suspect]
     Active Substance: INSULIN LISPRO
     Dosage: UNK, OTHER
     Dates: start: 1997
  2. LEVEMIR [Concomitant]
     Active Substance: INSULIN DETEMIR
  3. HUMALOG [Suspect]
     Active Substance: INSULIN LISPRO
     Dosage: 26 U, UNK
     Dates: start: 20100419, end: 20100419
  4. HUMALOG MIX75/25 [Suspect]
     Active Substance: INSULIN LISPRO
     Dosage: 48 U, EACH MORNING
     Dates: start: 1997, end: 2009
  5. HUMULIN N [Suspect]
     Active Substance: INSULIN HUMAN
     Dosage: 48 U, EACH EVENING
     Dates: start: 1997, end: 2009
  6. HUMALOG [Suspect]
     Active Substance: INSULIN LISPRO
     Dosage: 24 U, EACH MORNING
     Dates: start: 1997

REACTIONS (6)
  - Blood glucose increased [Unknown]
  - Incorrect route of drug administration [Unknown]
  - Injection site injury [Unknown]
  - Injection site reaction [Unknown]
  - Vein disorder [Unknown]
  - Musculoskeletal disorder [Unknown]
